FAERS Safety Report 18576852 (Version 2)
Quarter: 2021Q1

REPORT INFORMATION
  Report Type: Spontaneous
  Country: US (occurrence: US)
  Receive Date: 20201203
  Receipt Date: 20210322
  Transmission Date: 20210419
  Serious: Yes (Death)
  Sender: FDA-Public Use
  Company Number: US-PFIZER INC-2020473569

PATIENT
  Age: 85 Year
  Sex: Female

DRUGS (1)
  1. XELJANZ [Suspect]
     Active Substance: TOFACITINIB CITRATE
     Dosage: 10 MG, DAILY (5MG 2 TABLETS DAILY)

REACTIONS (3)
  - Death [Fatal]
  - Decreased appetite [Unknown]
  - Herpes zoster [Unknown]
